FAERS Safety Report 14675858 (Version 1)
Quarter: 2018Q1

REPORT INFORMATION
  Report Type: Report from Study
  Country: DE (occurrence: DE)
  Receive Date: 20180323
  Receipt Date: 20180323
  Transmission Date: 20180509
  Serious: Yes (Hospitalization, Other)
  Sender: FDA-Public Use
  Company Number: DE-UCBSA-2018011533

PATIENT
  Age: 56 Year
  Sex: Female

DRUGS (1)
  1. ROTIGOTINE [Suspect]
     Active Substance: ROTIGOTINE
     Indication: PARKINSON^S DISEASE
     Dosage: 1 MG, ONCE DAILY (QD)
     Route: 062
     Dates: start: 20170401

REACTIONS (7)
  - Comminuted fracture [Not Recovered/Not Resolved]
  - Multiple injuries [Not Recovered/Not Resolved]
  - Localised infection [Not Recovered/Not Resolved]
  - Road traffic accident [Recovering/Resolving]
  - Underdose [Unknown]
  - Incontinence [Not Recovered/Not Resolved]
  - Off label use [Unknown]

NARRATIVE: CASE EVENT DATE: 20170401
